FAERS Safety Report 6054052-6 (Version None)
Quarter: 2009Q1

REPORT INFORMATION
  Report Type: 
  Country: None (occurrence: None)
  Receive Date: 20090123
  Receipt Date: 20090123
  Transmission Date: 20090719
  Serious: No
  Sender: FDA-Public Use
  Company Number: None

PATIENT
  Age: 49 Year
  Sex: Female
  Weight: 74.8435 kg

DRUGS (1)
  1. ALENDRONATE SODIUM [Suspect]
     Indication: OSTEOPOROSIS
     Dosage: 1 TABLET WEEKLY PO
     Route: 048
     Dates: start: 20080825, end: 20090118

REACTIONS (5)
  - ARTHRALGIA [None]
  - DYSPHAGIA [None]
  - EAR PAIN [None]
  - ODYNOPHAGIA [None]
  - PHARYNGEAL OEDEMA [None]
